FAERS Safety Report 9572038 (Version 2)
Quarter: 2013Q4

REPORT INFORMATION
  Report Type: Spontaneous
  Country: JP (occurrence: JP)
  Receive Date: 20131001
  Receipt Date: 20131004
  Transmission Date: 20140711
  Serious: Yes (Other)
  Sender: FDA-Public Use
  Company Number: JP-PFIZER INC-2013278454

PATIENT
  Age: 80 Year
  Sex: Female

DRUGS (3)
  1. LYRICA [Suspect]
     Route: 048
  2. PREDONINE [Suspect]
  3. RINDERON-VG [Suspect]

REACTIONS (1)
  - Tinea infection [Not Recovered/Not Resolved]
